FAERS Safety Report 5265283-7 (Version None)
Quarter: 2007Q1

REPORT INFORMATION
  Report Type: 
  Country: None (occurrence: None)
  Receive Date: 20061214
  Receipt Date: 20050427
  Transmission Date: 20070707
  Serious: Yes (Other)
  Sender: FDA-Public Use
  Company Number: 2005UW06586

PATIENT
  Age: 72 Year
  Weight: 61.234 kg

DRUGS (8)
  1. PULMICORT RESPULES [Suspect]
     Indication: CHRONIC OBSTRUCTIVE PULMONARY DISEASE
     Dates: start: 20050415
  2. LISINOPRIL [Concomitant]
  3. ZOCOR [Concomitant]
  4. POTASSIUM CHLORIDE [Concomitant]
  5. HYDRALAZINE HCL [Concomitant]
  6. FELODIPINE [Concomitant]
  7. RANITIDINE [Concomitant]
  8. SERTRALINE [Concomitant]

REACTIONS (2)
  - DIPLOPIA [None]
  - DRUG ADMINISTRATION ERROR [None]
